FAERS Safety Report 7331492-6 (Version None)
Quarter: 2011Q1

REPORT INFORMATION
  Report Type: 
  Country: None (occurrence: None)
  Receive Date: 20110228
  Receipt Date: 20110228
  Transmission Date: 20110831
  Serious: Yes (Other)
  Sender: FDA-Public Use
  Company Number: None

PATIENT
  Age: 13 Year
  Sex: Male
  Weight: 64.8644 kg

DRUGS (1)
  1. ACTHREL [Suspect]
     Indication: CUSHING'S SYNDROME
     Dosage: 100 MCG X1 IV
     Route: 042

REACTIONS (3)
  - LOSS OF CONSCIOUSNESS [None]
  - MUSCULOSKELETAL STIFFNESS [None]
  - UNRESPONSIVE TO STIMULI [None]
